FAERS Safety Report 8931536 (Version 1)
Quarter: 2012Q4

REPORT INFORMATION
  Report Type: Report from Study
  Country: GR (occurrence: GR)
  Receive Date: 20121128
  Receipt Date: 20121128
  Transmission Date: 20130627
  Serious: Yes (Hospitalization)
  Sender: FDA-Public Use
  Company Number: GR-ABBOTT-12P-066-0952794-00

PATIENT
  Age: 47 None
  Sex: Male
  Weight: 71 kg

DRUGS (8)
  1. ZEMPLAR INJECTION [Suspect]
     Indication: HYPERPARATHYROIDISM SECONDARY
     Dosage: initial dose 5 mcg three times per week
     Route: 042
     Dates: start: 20120223
  2. ZEMPLAR INJECTION [Suspect]
     Dosage: 2.5 mcg three times per week
     Route: 050
     Dates: start: 20120609
  3. SEVELAMER [Concomitant]
     Indication: HYPERPHOSPHATAEMIA
     Route: 048
     Dates: start: 20120201
  4. CALCIUM CARBONATE [Concomitant]
     Indication: HYPERPHOSPHATAEMIA
     Route: 048
     Dates: start: 20120201
  5. FOLIC ACID [Concomitant]
     Indication: ANAEMIA
     Route: 048
     Dates: start: 20120201
  6. ERYTHROPOETIN A [Concomitant]
     Indication: ANAEMIA
     Route: 042
     Dates: start: 20120201
  7. IRON [Concomitant]
     Indication: ANAEMIA
     Dosage: 3 amp per month
     Route: 042
     Dates: start: 20120201
  8. CARNITINE [Concomitant]
     Indication: MUSCULAR WEAKNESS
     Route: 042
     Dates: start: 20120201

REACTIONS (11)
  - Pyrexia [Recovering/Resolving]
  - Pneumonia [Recovered/Resolved]
  - Productive cough [Unknown]
  - Blood parathyroid hormone decreased [Unknown]
  - Respiratory tract infection [Unknown]
  - Productive cough [Unknown]
  - Pyrexia [Unknown]
  - White blood cell count increased [Recovering/Resolving]
  - Red blood cell sedimentation rate increased [Recovering/Resolving]
  - C-reactive protein increased [Recovering/Resolving]
  - Pneumonia [Unknown]
